FAERS Safety Report 6862982-8 (Version None)
Quarter: 2010Q3

REPORT INFORMATION
  Report Type: 
  Country: None (occurrence: None)
  Receive Date: 20100721
  Receipt Date: 20100716
  Transmission Date: 20110219
  Serious: Yes (Death)
  Sender: FDA-Public Use
  Company Number: BR-SANOFI-AVENTIS-2010SA041936

PATIENT
  Sex: Male

DRUGS (2)
  1. LANTUS [Suspect]
     Dates: end: 20100706
  2. INSULIN PEN NOS [Suspect]
     Dates: end: 20100706

REACTIONS (1)
  - CARDIAC ARREST [None]
